FAERS Safety Report 14053878 (Version 1)
Quarter: 2017Q4

REPORT INFORMATION
  Report Type: Spontaneous
  Country: CN (occurrence: CN)
  Receive Date: 20171005
  Receipt Date: 20171005
  Transmission Date: 20180321
  Serious: Yes (Other)
  Sender: FDA-Public Use
  Company Number: CN-ASTRAZENECA-2017SF00615

PATIENT
  Sex: Male
  Weight: 71 kg

DRUGS (3)
  1. SERTRALINE HYDROCHLORIDE. [Suspect]
     Active Substance: SERTRALINE HYDROCHLORIDE
     Indication: OBSESSIVE-COMPULSIVE PERSONALITY DISORDER
     Route: 048
     Dates: start: 20170710, end: 20170830
  2. QUETIAPINE FUMARATE. [Suspect]
     Active Substance: QUETIAPINE FUMARATE
     Indication: OBSESSIVE-COMPULSIVE PERSONALITY DISORDER
     Route: 048
     Dates: start: 20170808, end: 20170830
  3. FLUVOXAMINE MALEATE. [Suspect]
     Active Substance: FLUVOXAMINE MALEATE
     Indication: OBSESSIVE-COMPULSIVE PERSONALITY DISORDER
     Route: 048
     Dates: start: 20170710, end: 20170830

REACTIONS (1)
  - Hepatic function abnormal [Recovered/Resolved]
